FAERS Safety Report 15761892 (Version 1)
Quarter: 2018Q4

REPORT INFORMATION
  Report Type: Report from Study
  Country: JP (occurrence: JP)
  Receive Date: 20181226
  Receipt Date: 20181226
  Transmission Date: 20190205
  Serious: Yes (Other)
  Sender: FDA-Public Use
  Company Number: JP-INCYTE CORPORATION-2018IN013017

PATIENT

DRUGS (18)
  1. JAKAVI [Suspect]
     Active Substance: RUXOLITINIB
     Dosage: 15 MG, BID
     Route: 048
     Dates: start: 20171101, end: 20171102
  2. JAKAVI [Suspect]
     Active Substance: RUXOLITINIB
     Dosage: 15 MG (IN TWO DIVIDED DOSES), BID
     Route: 048
     Dates: start: 20171127
  3. JAKAVI [Suspect]
     Active Substance: RUXOLITINIB
     Indication: PRIMARY MYELOFIBROSIS
     Dosage: 5 MG, BID
     Route: 048
     Dates: start: 20141218, end: 20150107
  4. JAKAVI [Suspect]
     Active Substance: RUXOLITINIB
     Dosage: 10 MG, BID
     Route: 048
     Dates: start: 20150108, end: 20150302
  5. JAKAVI [Suspect]
     Active Substance: RUXOLITINIB
     Dosage: 20 MG, BID
     Route: 048
     Dates: start: 20150513, end: 20150623
  6. JAKAVI [Suspect]
     Active Substance: RUXOLITINIB
     Dosage: 25 MG, BID
     Route: 048
     Dates: start: 20150715, end: 20171025
  7. JAKAVI [Suspect]
     Active Substance: RUXOLITINIB
     Dosage: 25 MG (IN TWO DIVIDED DOSES), BID
     Route: 048
     Dates: start: 20171103, end: 20171106
  8. JAKAVI [Suspect]
     Active Substance: RUXOLITINIB
     Dosage: 15 MG (IN TWO DIVIDED DOSES), BID
     Route: 048
     Dates: start: 20171110, end: 20171113
  9. JAKAVI [Suspect]
     Active Substance: RUXOLITINIB
     Dosage: 5 MG, BID
     Route: 048
     Dates: start: 20171121, end: 20171126
  10. JAKAVI [Suspect]
     Active Substance: RUXOLITINIB
     Dosage: 15 MG, BID
     Route: 048
     Dates: start: 20150303, end: 20150414
  11. JAKAVI [Suspect]
     Active Substance: RUXOLITINIB
     Dosage: 35 MG (IN TWO DIVIDED DOSES), BID
     Route: 048
     Dates: start: 20150415, end: 20150512
  12. JAKAVI [Suspect]
     Active Substance: RUXOLITINIB
     Dosage: 45 MG (IN TWO DIVIDED DOSES), BID
     Route: 048
     Dates: start: 20150624, end: 20150714
  13. JAKAVI [Suspect]
     Active Substance: RUXOLITINIB
     Dosage: 5 MG, BID
     Route: 048
     Dates: start: 20171114, end: 20171116
  14. JAKAVI [Suspect]
     Active Substance: RUXOLITINIB
     Dosage: 35 MG (IN TWO DIVIDED DOSES), BID
     Route: 048
     Dates: start: 20171030, end: 20171030
  15. JAKAVI [Suspect]
     Active Substance: RUXOLITINIB
     Dosage: 5 MG, QD
     Route: 048
     Dates: start: 20171117, end: 20171118
  16. JAKAVI [Suspect]
     Active Substance: RUXOLITINIB
     Dosage: 45 MG (IN TWO DIVIDED DOSES), BID
     Route: 048
     Dates: start: 20171026, end: 20171028
  17. JAKAVI [Suspect]
     Active Substance: RUXOLITINIB
     Dosage: 20 MG, BID
     Route: 048
     Dates: start: 20171028, end: 20171029
  18. JAKAVI [Suspect]
     Active Substance: RUXOLITINIB
     Dosage: 10 MG, BID
     Route: 048
     Dates: start: 20171107, end: 20171109

REACTIONS (5)
  - Portal hypertension [Unknown]
  - Splenomegaly [Not Recovered/Not Resolved]
  - Abdominal distension [Recovering/Resolving]
  - Rash [Recovering/Resolving]
  - Concomitant disease aggravated [Unknown]

NARRATIVE: CASE EVENT DATE: 20170814
